FAERS Safety Report 6691520-8 (Version None)
Quarter: 2010Q2

REPORT INFORMATION
  Report Type: 
  Country: None (occurrence: None)
  Receive Date: 20100422
  Receipt Date: 20100420
  Transmission Date: 20101027
  Serious: Yes (Other)
  Sender: FDA-Public Use
  Company Number: JP-BAYER-201011805BYL

PATIENT
  Age: 68 Year
  Sex: Male
  Weight: 63 kg

DRUGS (2)
  1. NEXAVAR [Suspect]
     Indication: RENAL CELL CARCINOMA
     Dosage: UNIT DOSE: 200 MG
     Route: 048
     Dates: start: 20080703
  2. ASPIRIN [Concomitant]
     Indication: ATRIAL TACHYCARDIA
     Dosage: UNIT DOSE: 100 MG
     Route: 048
     Dates: start: 20080715, end: 20080717

REACTIONS (4)
  - ALOPECIA [None]
  - ATRIAL TACHYCARDIA [None]
  - DYSPHONIA [None]
  - PALMAR-PLANTAR ERYTHRODYSAESTHESIA SYNDROME [None]
